FAERS Safety Report 4493022-6 (Version None)
Quarter: 2004Q4

REPORT INFORMATION
  Report Type: 
  Country: None (occurrence: None)
  Receive Date: 20041029
  Receipt Date: 20041015
  Transmission Date: 20050328
  Serious: Yes (Other)
  Sender: FDA-Public Use
  Company Number: MEDI-0002302

PATIENT
  Age: 74 Year
  Sex: Male
  Weight: 73.9363 kg

DRUGS (15)
  1. ETHYOL [Suspect]
     Indication: RADIOTHERAPY
     Dosage: 500 MG, 5 IN 1 WK, SUBCUTANEOUS
     Route: 058
     Dates: start: 20040817, end: 20041004
  2. TRICOR [Concomitant]
  3. RADIATION THERAPY [Concomitant]
  4. TAXOTERE [Concomitant]
  5. CISPLATIN [Concomitant]
  6. FLUOROURACIL [Concomitant]
  7. COUMADIN [Concomitant]
  8. SENOKOT [Concomitant]
  9. NEURONTIN [Concomitant]
  10. VITAMIN B6 [Concomitant]
  11. IMODIUM [Concomitant]
  12. MAGIC MOUTHWASH [Concomitant]
  13. TYLENOL WITH CODEINE (CODEIN PHOSPHATASE, PARACETAMOL) [Concomitant]
  14. COMAZINE (PROCHLORPERAZINE EDISYLATE) [Concomitant]
  15. ATIVAN [Concomitant]

REACTIONS (5)
  - ASTHENIA [None]
  - COMA [None]
  - CONVULSION [None]
  - HYPOTENSION [None]
  - TREMOR [None]
